FAERS Safety Report 7538005-4 (Version None)
Quarter: 2011Q2

REPORT INFORMATION
  Report Type: 
  Country: None (occurrence: None)
  Receive Date: 20110609
  Receipt Date: 20110607
  Transmission Date: 20111010
  Serious: Yes (Other)
  Sender: FDA-Public Use
  Company Number: TW-PFIZER INC-2011123616

PATIENT
  Age: 52 Year
  Sex: Female

DRUGS (4)
  1. ESCITALOPRAM OXALATE [Suspect]
  2. FLUOXETINE [Suspect]
  3. DULOXETIME HYDROCHLORIDE [Suspect]
  4. SERTRALINE HYDROCHLORIDE [Suspect]

REACTIONS (3)
  - MULTIPLE SYSTEM ATROPHY [None]
  - EXTRAPYRAMIDAL DISORDER [None]
  - PARKINSONISM [None]
